FAERS Safety Report 12967940 (Version 1)
Quarter: 2016Q4

REPORT INFORMATION
  Report Type: Spontaneous
  Country: US (occurrence: US)
  Receive Date: 20161122
  Receipt Date: 20161122
  Transmission Date: 20170207
  Serious: Yes (Life-Threatening, Hospitalization, Disabling)
  Sender: FDA-Public Use
  Company Number: None

PATIENT
  Age: 52 Year
  Sex: Male
  Weight: 112.5 kg

DRUGS (2)
  1. HUMIRA [Suspect]
     Active Substance: ADALIMUMAB
     Indication: PSORIASIS
     Dosage: ?          QUANTITY:1 INJECTION(S);OTHER FREQUENCY:1 INJECTION 2 WEEK;OTHER ROUTE:INJECTION INTO THE THIGH?
  2. HUMIRA [Suspect]
     Active Substance: ADALIMUMAB
     Indication: ARTHRITIS
     Dosage: ?          QUANTITY:1 INJECTION(S);OTHER FREQUENCY:1 INJECTION 2 WEEK;OTHER ROUTE:INJECTION INTO THE THIGH?

REACTIONS (7)
  - Pyrexia [None]
  - Asthenia [None]
  - Malaise [None]
  - Immobile [None]
  - Decreased appetite [None]
  - Peripheral swelling [None]
  - Abdominal distension [None]
